FAERS Safety Report 6551768-X (Version None)
Quarter: 2010Q1

REPORT INFORMATION
  Report Type: 
  Country: None (occurrence: None)
  Receive Date: 20100126
  Receipt Date: 20100118
  Transmission Date: 20100710
  Serious: Yes (Other)
  Sender: FDA-Public Use
  Company Number: ES-ROCHE-680136

PATIENT
  Age: 69 Year
  Sex: Male

DRUGS (4)
  1. AVASTIN [Suspect]
     Dosage: CYCLIC
     Route: 042
     Dates: start: 20090204, end: 20090720
  2. FLUOROURACIL [Suspect]
     Dosage: CYCLIC
     Route: 042
     Dates: start: 20090204
  3. CALCIUM FOLINATE [Concomitant]
     Dosage: CYCLIC
     Route: 042
     Dates: start: 20090204
  4. IRINOTECAN HCL [Concomitant]
     Route: 042
     Dates: start: 20090204

REACTIONS (2)
  - EPISTAXIS [None]
  - NASAL ULCER [None]
